FAERS Safety Report 23227984 (Version 2)
Quarter: 2023Q4

REPORT INFORMATION
  Report Type: Report from Study
  Country: CZ (occurrence: CZ)
  Receive Date: 20231125
  Receipt Date: 20231231
  Transmission Date: 20240110
  Serious: Yes (Hospitalization)
  Sender: FDA-Public Use
  Company Number: CZ-ABBVIE-5506484

PATIENT
  Age: 5 Year
  Sex: Female
  Weight: 17 kg

DRUGS (4)
  1. HUMIRA [Suspect]
     Active Substance: ADALIMUMAB
     Indication: Juvenile idiopathic arthritis
     Route: 058
     Dates: start: 20221107, end: 20230925
  2. METHOTREXATE [Concomitant]
     Active Substance: METHOTREXATE
     Indication: Product used for unknown indication
     Dates: start: 20230829
  3. FOLIC ACID [Concomitant]
     Active Substance: FOLIC ACID
     Indication: Product used for unknown indication
     Dosage: HALF OF THE TABLET
  4. Vigantol [Concomitant]
     Indication: Juvenile idiopathic arthritis
     Dosage: 10 DROP
     Dates: start: 2020

REACTIONS (2)
  - Lymphadenitis [Recovered/Resolved]
  - Lymph node abscess [Recovered/Resolved]

NARRATIVE: CASE EVENT DATE: 20231016
